FAERS Safety Report 25551536 (Version 3)
Quarter: 2025Q3

REPORT INFORMATION
  Report Type: Spontaneous
  Country: US (occurrence: US)
  Receive Date: 20250714
  Receipt Date: 20250811
  Transmission Date: 20251021
  Serious: No
  Sender: PFIZER
  Company Number: US-PFIZER INC-202500138377

PATIENT
  Age: 16 Year
  Sex: Male

DRUGS (2)
  1. GENOTROPIN [Suspect]
     Active Substance: SOMATROPIN
     Dates: start: 202305
  2. GENOTROPIN [Suspect]
     Active Substance: SOMATROPIN
     Dosage: 7 DAYS PER WEEK
     Route: 058

REACTIONS (2)
  - Device physical property issue [Unknown]
  - Drug dose omission by device [Unknown]
